FAERS Safety Report 10101507 (Version 1)
Quarter: 2014Q2

REPORT INFORMATION
  Report Type: Spontaneous
  Country: US (occurrence: None)
  Receive Date: 20140422
  Receipt Date: 20140422
  Transmission Date: 20141212
  Serious: Yes (Hospitalization, Other)
  Sender: FDA-Public Use
  Company Number: DAV-AE-ALP-14-07

PATIENT
  Age: 44 Year
  Sex: Female

DRUGS (2)
  1. ALPRAZOLAM [Suspect]
     Indication: INTENTIONAL OVERDOSE
     Dosage: 60 (1 MG TABLETS), ONCE, PO
     Route: 048
  2. POTASSIUM CHLORIDE [Concomitant]

REACTIONS (7)
  - Hyperkalaemia [None]
  - Bezoar [None]
  - Intentional overdose [None]
  - Blood pressure decreased [None]
  - Body temperature decreased [None]
  - Aggression [None]
  - Mental status changes [None]
